FAERS Safety Report 9315696 (Version 1)
Quarter: 2013Q2

REPORT INFORMATION
  Report Type: Spontaneous
  Country: US (occurrence: US)
  Receive Date: 20130529
  Receipt Date: 20130529
  Transmission Date: 20140414
  Serious: Yes (Hospitalization, Other)
  Sender: FDA-Public Use
  Company Number: US-ELI_LILLY_AND_COMPANY-US201211008525

PATIENT
  Age: 55 Year
  Sex: Female

DRUGS (16)
  1. FORTEO [Suspect]
     Indication: OSTEOPOROSIS
     Dosage: 20 UG, QD
     Route: 058
     Dates: start: 20121120
  2. FORTEO [Suspect]
     Dosage: 20 UG, QD
     Route: 058
  3. FORTEO [Suspect]
     Dosage: 20 UG, QD
     Route: 058
  4. CALCIUM [Concomitant]
     Dosage: UNK, UNKNOWN
  5. VITAMIN D NOS [Concomitant]
     Dosage: UNK, UNKNOWN
  6. COREG [Concomitant]
     Dosage: 12.5 MG, BID
  7. LISINOPRIL [Concomitant]
     Dosage: 40 MG, QD
  8. TOPAMAX [Concomitant]
     Indication: HEADACHE
     Dosage: 100 MG, BID
  9. CYMBALTA [Concomitant]
     Indication: DEPRESSION
     Dosage: 60 MG, QD
  10. NORCO [Concomitant]
     Indication: PAIN
     Dosage: 300 MG, QD
  11. POTASSIUM [Concomitant]
     Dosage: 10 MEQ, QD
  12. IRON [Concomitant]
     Dosage: 325 MG, QD
  13. MULTIVITAMIN [Concomitant]
     Dosage: UNK, QD
  14. VITAMIN D3 [Concomitant]
     Dosage: 400 IU, QD
  15. VITAMIN C [Concomitant]
     Dosage: 500 MG, QD
  16. VITAMIN B12 [Concomitant]
     Dosage: UNK, QD

REACTIONS (20)
  - Fall [Unknown]
  - Laceration [Unknown]
  - Loss of consciousness [Unknown]
  - Head injury [Unknown]
  - Coma [Recovered/Resolved]
  - Upper limb fracture [Unknown]
  - Wrist fracture [Unknown]
  - Aggression [Unknown]
  - Cerebral haemorrhage [Unknown]
  - Fall [Unknown]
  - Laceration [Unknown]
  - Loss of consciousness [Unknown]
  - Convulsion [Unknown]
  - Fall [Unknown]
  - Diarrhoea [Unknown]
  - Fall [Unknown]
  - Eating disorder [Unknown]
  - Contusion [Unknown]
  - Nasopharyngitis [Not Recovered/Not Resolved]
  - Incorrect dose administered [Unknown]
